FAERS Safety Report 7718086-5 (Version None)
Quarter: 2011Q3

REPORT INFORMATION
  Report Type: 
  Country: None (occurrence: None)
  Receive Date: 20110830
  Receipt Date: 20110819
  Transmission Date: 20111222
  Serious: Yes (Hospitalization)
  Sender: FDA-Public Use
  Company Number: US-US-EMD SERONO, INC.-7078097

PATIENT
  Sex: Female
  Weight: 109 kg

DRUGS (3)
  1. ORAL MEDICATION [Concomitant]
     Indication: TYPE 2 DIABETES MELLITUS
  2. REBIF [Suspect]
     Indication: MULTIPLE SCLEROSIS
     Dates: start: 20110715, end: 20110810
  3. LISINOPRIL [Concomitant]
     Indication: BLOOD PRESSURE
     Dates: end: 20110816

REACTIONS (2)
  - RENAL IMPAIRMENT [None]
  - DEHYDRATION [None]
